FAERS Safety Report 23858708 (Version 1)
Quarter: 2024Q2

REPORT INFORMATION
  Report Type: Spontaneous
  Country: US (occurrence: US)
  Receive Date: 20240515
  Receipt Date: 20240515
  Transmission Date: 20240715
  Serious: Yes (Other)
  Sender: FDA-Public Use
  Company Number: US-TORRENT-00013566

PATIENT
  Age: 49 Year
  Sex: Female

DRUGS (13)
  1. DAPSONE [Suspect]
     Active Substance: DAPSONE
     Indication: Urticaria chronic
     Route: 065
  2. CETIRIZINE [Concomitant]
     Active Substance: CETIRIZINE HYDROCHLORIDE
     Indication: Urticaria chronic
     Dosage: 20 MG TWICE DAILY
     Route: 065
  3. CIMETIDINE [Concomitant]
     Active Substance: CIMETIDINE
     Indication: Urticaria chronic
     Dosage: 400 MG TWICE DAILY
     Route: 065
  4. CYCLOSPORINE [Concomitant]
     Active Substance: CYCLOSPORINE
     Indication: Urticaria chronic
     Dosage: 100 MG TWICE DAILY
     Route: 065
  5. DIPHENHYDRAMINE [Concomitant]
     Active Substance: DIPHENHYDRAMINE
     Indication: Urticaria chronic
     Dosage: AT NIGHT
     Route: 065
  6. FEXOFENADINE [Concomitant]
     Active Substance: FEXOFENADINE HYDROCHLORIDE
     Indication: Urticaria chronic
     Dosage: 360 MG TWICE DAILY
     Route: 065
  7. HYDROXYCHLOROQUINE [Concomitant]
     Active Substance: HYDROXYCHLOROQUINE
     Indication: Urticaria chronic
     Dosage: 200 MG DAILY
     Route: 065
  8. HYDROXYZINE [Concomitant]
     Active Substance: HYDROXYZINE HYDROCHLORIDE
     Indication: Urticaria chronic
     Dosage: AT NIGHT
     Route: 065
  9. LEVOCETIRIZINE [Concomitant]
     Active Substance: LEVOCETIRIZINE
     Indication: Urticaria chronic
     Dosage: 10 MG TWICE DAILY
     Route: 065
  10. MYCOPHENOLATE MOFETIL [Concomitant]
     Active Substance: MYCOPHENOLATE MOFETIL
     Indication: Urticaria chronic
     Dosage: 500 MG TWICE DAILY
     Route: 065
  11. OMALIZUMAB [Concomitant]
     Active Substance: OMALIZUMAB
     Indication: Urticaria chronic
     Dosage: 300 MG EVERY 2 WEEK
     Route: 065
  12. PREDNISONE [Concomitant]
     Active Substance: PREDNISONE
     Indication: Urticaria chronic
     Dosage: UP TO 40 MG DAILY
     Route: 065
  13. SULFASALAZINE [Concomitant]
     Active Substance: SULFASALAZINE
     Indication: Urticaria chronic
     Dosage: 1000 MG TWICE DAILY
     Route: 065

REACTIONS (1)
  - Leukopenia [Unknown]
